FAERS Safety Report 4738149-6 (Version None)
Quarter: 2005Q3

REPORT INFORMATION
  Report Type: 
  Country: None (occurrence: None)
  Receive Date: 20050802
  Receipt Date: 20050715
  Transmission Date: 20060218
  Serious: Yes (Other)
  Sender: FDA-Public Use
  Company Number: B0388221A

PATIENT
  Age: 62 Year
  Sex: Female

DRUGS (8)
  1. LITHIUM CARBONATE [Suspect]
  2. ELECTROCONVULSIVE THERAPY (FORMULATION UNKNOWN) (ELECTROCONVULSIVE THE [Suspect]
     Indication: MAJOR DEPRESSION
  3. CARBAMAZEPINE [Concomitant]
  4. MIRTAZAPINE [Concomitant]
  5. THYROXINE SODIUM [Concomitant]
  6. ENALAPRIL [Concomitant]
  7. LORAZEPAM [Concomitant]
  8. THIOPENTONE SODIUM [Concomitant]

REACTIONS (14)
  - BLOOD PRESSURE INCREASED [None]
  - CHILLS [None]
  - COGNITIVE DISORDER [None]
  - DISORIENTATION [None]
  - HEART RATE INCREASED [None]
  - HYPERREFLEXIA [None]
  - LEUKOCYTOSIS [None]
  - MAJOR DEPRESSION [None]
  - MUSCLE RIGIDITY [None]
  - PSYCHIATRIC SYMPTOM [None]
  - PSYCHOMOTOR RETARDATION [None]
  - PYREXIA [None]
  - SEROTONIN SYNDROME [None]
  - THERAPY NON-RESPONDER [None]
